FAERS Safety Report 6787655-1 (Version None)
Quarter: 2010Q2

REPORT INFORMATION
  Report Type: 
  Country: None (occurrence: None)
  Receive Date: 20100623
  Receipt Date: 20040331
  Transmission Date: 20101027
  Serious: No
  Sender: FDA-Public Use
  Company Number: US-PFIZER INC-2007056923

PATIENT
  Sex: Female

DRUGS (1)
  1. XALATAN [Suspect]
     Dates: start: 20031201

REACTIONS (1)
  - DRY EYE [None]
